FAERS Safety Report 19413228 (Version 3)
Quarter: 2021Q3

REPORT INFORMATION
  Report Type: Spontaneous
  Country: DE (occurrence: DE)
  Receive Date: 20210614
  Receipt Date: 20210701
  Transmission Date: 20211014
  Serious: Yes (Life-Threatening, Hospitalization, Other)
  Sender: FDA-Public Use
  Company Number: DE-PFIZER INC-2021660953

PATIENT
  Age: 26 Year
  Sex: Male
  Weight: 80 kg

DRUGS (2)
  1. AMLODIPINE BESILATE [Suspect]
     Active Substance: AMLODIPINE BESYLATE
     Indication: SUICIDE ATTEMPT
     Dosage: 500 MG
     Route: 048
  2. RAMIPRIL. [Suspect]
     Active Substance: RAMIPRIL
     Indication: SUICIDE ATTEMPT
     Dosage: 700 MG
     Route: 048

REACTIONS (9)
  - Toxicity to various agents [Recovered/Resolved]
  - Atrial fibrillation [Recovered/Resolved]
  - Shock [Recovered/Resolved]
  - Suicide attempt [Recovering/Resolving]
  - Pulmonary congestion [Recovered/Resolved]
  - Distributive shock [Recovered/Resolved]
  - Intentional overdose [Recovered/Resolved]
  - Pleural effusion [Recovered/Resolved]
  - Vascular resistance systemic decreased [Recovered/Resolved]
